FAERS Safety Report 23778392 (Version 1)
Quarter: 2024Q2

REPORT INFORMATION
  Report Type: Spontaneous
  Country: US (occurrence: None)
  Receive Date: 20240423
  Receipt Date: 20240423
  Transmission Date: 20240715
  Serious: No
  Sender: FDA-Public Use
  Company Number: None

PATIENT
  Age: 42 Year
  Sex: Female
  Weight: 60.78 kg

DRUGS (1)
  1. LISDEXAMFETAMINE [Suspect]
     Active Substance: LISDEXAMFETAMINE
     Indication: Attention deficit hyperactivity disorder
     Dates: start: 20240103, end: 20240104

REACTIONS (4)
  - Abdominal pain upper [None]
  - Agitation [None]
  - Decreased appetite [None]
  - Headache [None]

NARRATIVE: CASE EVENT DATE: 20240103
